FAERS Safety Report 5139507-0 (Version None)
Quarter: 2006Q4

REPORT INFORMATION
  Report Type: 
  Country: None (occurrence: None)
  Receive Date: 20061030
  Receipt Date: 20060628
  Transmission Date: 20070319
  Serious: Yes (Other)
  Sender: FDA-Public Use
  Company Number: NL-BOEHRINGER INGELHEIM GMBH, GERMANY-2006-DE-03329GD

PATIENT

DRUGS (15)
  1. TIPRANAVIR + RITONAVIR CO-ADMIN [Suspect]
     Indication: PROPHYLAXIS
     Route: 015
  2. TIPRANAVIR + RITONAVIR CO-ADMIN [Suspect]
     Indication: HUMAN IMMUNODEFICIENCY VIRUS TRANSMISSION
  3. NEVIRAPINE [Suspect]
     Indication: PROPHYLAXIS
  4. ZIDOVUDINE [Suspect]
     Indication: PROPHYLAXIS
     Route: 015
  5. ZIDOVUDINE [Suspect]
     Indication: HUMAN IMMUNODEFICIENCY VIRUS TRANSMISSION
     Dosage: HIGH DOSE
     Route: 015
  6. LAMIVUDINE [Suspect]
     Indication: PROPHYLAXIS
     Route: 015
  7. LAMIVUDINE [Suspect]
  8. LAMIVUDINE [Suspect]
     Indication: HUMAN IMMUNODEFICIENCY VIRUS TRANSMISSION
  9. ABACAVIR [Suspect]
     Indication: PROPHYLAXIS
     Route: 015
  10. ABACAVIR [Suspect]
     Indication: HUMAN IMMUNODEFICIENCY VIRUS TRANSMISSION
  11. TENOFOVIR [Suspect]
     Indication: PROPHYLAXIS
     Route: 015
  12. TENOFOVIR [Suspect]
     Indication: HUMAN IMMUNODEFICIENCY VIRUS TRANSMISSION
  13. ENFUVIRTIDE [Suspect]
     Indication: PROPHYLAXIS
     Route: 015
  14. ENFUVIRTIDE [Suspect]
     Indication: HUMAN IMMUNODEFICIENCY VIRUS TRANSMISSION
  15. BOOSTED LOPINAVIR [Suspect]
     Indication: PROPHYLAXIS

REACTIONS (3)
  - CAESAREAN SECTION [None]
  - HAEMOGLOBIN DECREASED [None]
  - PREMATURE BABY [None]
